FAERS Safety Report 17289208 (Version 1)
Quarter: 2020Q1

REPORT INFORMATION
  Report Type: Spontaneous
  Country: DE (occurrence: DE)
  Receive Date: 20200120
  Receipt Date: 20200120
  Transmission Date: 20200409
  Serious: Yes (Hospitalization, Other)
  Sender: FDA-Public Use
  Company Number: DE-009507513-2001DEU006111

PATIENT
  Sex: Female

DRUGS (8)
  1. KEYTRUDA [Suspect]
     Active Substance: PEMBROLIZUMAB
     Indication: NON-SMALL CELL LUNG CANCER STAGE IV
     Dosage: 200 MILLIGRAM, Q3W
     Dates: start: 20190502, end: 20190725
  2. KEYTRUDA [Suspect]
     Active Substance: PEMBROLIZUMAB
     Dosage: 200 MILLIGRAM, Q3W
     Dates: start: 20190822, end: 20190822
  3. PEMETREXED DISODIUM [Suspect]
     Active Substance: PEMETREXED DISODIUM
     Indication: NON-SMALL CELL LUNG CANCER STAGE IV
     Dosage: 500 MILLIGRAM/SQ. METER, Q3W
     Dates: start: 20190502, end: 20190725
  4. CARBOPLATIN. [Suspect]
     Active Substance: CARBOPLATIN
     Indication: NON-SMALL CELL LUNG CANCER
     Dosage: AUC5, Q3W
     Dates: start: 20190502, end: 20190725
  5. CARBOPLATIN. [Suspect]
     Active Substance: CARBOPLATIN
     Dosage: AUC5, Q3W
     Dates: start: 20190822, end: 20190822
  6. DOCETAXEL. [Suspect]
     Active Substance: DOCETAXEL
     Indication: NON-SMALL CELL LUNG CANCER STAGE IV
     Dosage: 75 MILLIGRAM/SQ. METER, Q3W
     Dates: start: 20190912
  7. NINTEDANIB [Suspect]
     Active Substance: NINTEDANIB
     Dosage: 100MG 2X2 D1-D21, Q3W
     Route: 048
     Dates: start: 20190912
  8. PEMETREXED DISODIUM [Suspect]
     Active Substance: PEMETREXED DISODIUM
     Dosage: 500 MILLIGRAM/SQ. METER, Q3W
     Dates: start: 20190822, end: 20190822

REACTIONS (5)
  - Inappropriate schedule of product administration [Unknown]
  - Malignant neoplasm progression [Unknown]
  - Diarrhoea [Unknown]
  - Febrile neutropenia [Unknown]
  - Nausea [Unknown]

NARRATIVE: CASE EVENT DATE: 20190627
